FAERS Safety Report 20455743 (Version 1)
Quarter: 2022Q1

REPORT INFORMATION
  Report Type: Spontaneous
  Country: US (occurrence: None)
  Receive Date: 20220210
  Receipt Date: 20220210
  Transmission Date: 20220424
  Serious: No
  Sender: FDA-Public Use
  Company Number: None

PATIENT
  Age: 48 Year
  Sex: Male
  Weight: 241 kg

DRUGS (1)
  1. AMILORIDE HYDROCHLORIDE [Suspect]
     Active Substance: AMILORIDE HYDROCHLORIDE
     Indication: Hypertension
     Dosage: OTHER FREQUENCY : AM;?
     Route: 048
     Dates: start: 20210415, end: 20211130

REACTIONS (3)
  - Blood creatinine increased [None]
  - Renal pain [None]
  - Nephropathy [None]

NARRATIVE: CASE EVENT DATE: 20211130
